FAERS Safety Report 16071274 (Version 4)
Quarter: 2019Q3

REPORT INFORMATION
  Report Type: Spontaneous
  Country: US (occurrence: US)
  Receive Date: 20190314
  Receipt Date: 20190731
  Transmission Date: 20191004
  Serious: Yes (Disabling)
  Sender: FDA-Public Use
  Company Number: US-PFIZER INC-2019106025

PATIENT
  Sex: Male

DRUGS (2)
  1. LYRICA [Suspect]
     Active Substance: PREGABALIN
     Indication: FIBROMYALGIA
     Dosage: 200 MG, DAILY
  2. LYRICA [Suspect]
     Active Substance: PREGABALIN
     Dosage: 400 MG, DAILY [TAKES ONE IN MORNING AND ONE AT NIGHT]

REACTIONS (6)
  - Dyspnoea [Unknown]
  - Arthralgia [Unknown]
  - Weight increased [Unknown]
  - Gynaecomastia [Unknown]
  - Back pain [Unknown]
  - Anxiety [Unknown]
